FAERS Safety Report 6784882-4 (Version None)
Quarter: 2010Q2

REPORT INFORMATION
  Report Type: 
  Country: None (occurrence: None)
  Receive Date: 20100617
  Receipt Date: 20100607
  Transmission Date: 20101027
  Serious: Yes (Hospitalization)
  Sender: FDA-Public Use
  Company Number: 8044475

PATIENT
  Sex: Female
  Weight: 83 kg

DRUGS (8)
  1. CERTOLIZUMAB PEGOL [Suspect]
     Indication: RHEUMATOID ARTHRITIS
     Dosage: (400 MG 1X/2 WEEKS, - NR OF DOSES :3 SUBCUTANEOUS), (200 MG 1X/2 WEEKS SUBCUTANEOUS)
     Route: 058
     Dates: start: 20090126, end: 20090201
  2. CERTOLIZUMAB PEGOL [Suspect]
     Indication: RHEUMATOID ARTHRITIS
     Dosage: (400 MG 1X/2 WEEKS, - NR OF DOSES :3 SUBCUTANEOUS), (200 MG 1X/2 WEEKS SUBCUTANEOUS)
     Route: 058
     Dates: start: 20090201, end: 20090323
  3. PREDNISONE [Concomitant]
  4. NORCO [Concomitant]
  5. PAXIL [Concomitant]
  6. METFORMIN [Concomitant]
  7. ALLSAN MULTIVITAMIN UND MINERAL [Concomitant]
  8. CALTRATE [Concomitant]

REACTIONS (15)
  - ALANINE AMINOTRANSFERASE INCREASED [None]
  - ARTHROPOD BITE [None]
  - ASPARTATE AMINOTRANSFERASE INCREASED [None]
  - BLOOD CALCIUM DECREASED [None]
  - BLOOD CHLORIDE DECREASED [None]
  - BLOOD GLUCOSE INCREASED [None]
  - BLOOD KETONE BODY INCREASED [None]
  - DEHYDRATION [None]
  - HYPONATRAEMIA [None]
  - LYMPHOCYTE COUNT INCREASED [None]
  - MONOCYTE COUNT INCREASED [None]
  - NAUSEA [None]
  - NEUTROPHIL COUNT DECREASED [None]
  - TREMOR [None]
  - URINARY TRACT INFECTION [None]
